FAERS Safety Report 6928901-0 (Version None)
Quarter: 2010Q3

REPORT INFORMATION
  Report Type: 
  Country: None (occurrence: None)
  Receive Date: 20100810
  Receipt Date: 20100527
  Transmission Date: 20110219
  Serious: Yes (Hospitalization)
  Sender: FDA-Public Use
  Company Number: 2010067535

PATIENT
  Age: 83 Year
  Sex: Female

DRUGS (2)
  1. FLAGYL [Suspect]
     Dates: start: 20100327, end: 20100405
  2. CIPROFLOXACIN [Suspect]
     Dates: start: 20100327, end: 20100405

REACTIONS (2)
  - NAUSEA [None]
  - VOMITING [None]
